FAERS Safety Report 9097530 (Version 2)
Quarter: 2013Q1

REPORT INFORMATION
  Report Type: Spontaneous
  Country: US (occurrence: US)
  Receive Date: 20130212
  Receipt Date: 20130325
  Transmission Date: 20140127
  Serious: No
  Sender: FDA-Public Use
  Company Number: US-PFIZER INC-2013051576

PATIENT
  Age: 9 Year
  Sex: Female

DRUGS (1)
  1. ZYVOX [Suspect]
     Indication: SEPTIC ARTHRITIS STAPHYLOCOCCAL
     Dosage: 340 MG, 3X/DAY
     Route: 048

REACTIONS (1)
  - Dysphagia [Unknown]
